FAERS Safety Report 15778369 (Version 1)
Quarter: 2018Q4

REPORT INFORMATION
  Report Type: Spontaneous
  Country: GB (occurrence: GB)
  Receive Date: 20181231
  Receipt Date: 20181231
  Transmission Date: 20190205
  Serious: Yes (Hospitalization, Other)
  Sender: FDA-Public Use
  Company Number: GB-PFIZER INC-2018531608

PATIENT
  Age: 57 Year
  Sex: Female
  Weight: 193 kg

DRUGS (5)
  1. LEVOTHYROXINE. [Concomitant]
     Active Substance: LEVOTHYROXINE
     Dosage: UNK
  2. FLUOXETINE [Concomitant]
     Active Substance: FLUOXETINE HYDROCHLORIDE
     Dosage: UNK
  3. BECLOMETASONE DIPROPIONATE [Concomitant]
     Active Substance: BECLOMETHASONE DIPROPIONATE
     Dosage: UNK
  4. TEICOPLANIN [Suspect]
     Active Substance: TEICOPLANIN
     Indication: CELLULITIS
     Dosage: 1.8 G, CYCLIC(OF VARYING TWICE DAILY OR ONCE DAILY AND 48 HOURLY AS PER SMPC.)
     Route: 042
     Dates: start: 20181113, end: 20181126
  5. CLINDAMYCIN PHOSPHATE. [Suspect]
     Active Substance: CLINDAMYCIN PHOSPHATE
     Indication: CELLULITIS
     Dosage: 4.8 G, 1X/DAY
     Route: 042
     Dates: start: 20181113, end: 20181126

REACTIONS (2)
  - Rash erythematous [Not Recovered/Not Resolved]
  - Pallor [Not Recovered/Not Resolved]

NARRATIVE: CASE EVENT DATE: 20181125
